FAERS Safety Report 16801424 (Version 2)
Quarter: 2019Q4

REPORT INFORMATION
  Report Type: Spontaneous
  Country: US (occurrence: US)
  Receive Date: 20190912
  Receipt Date: 20191104
  Transmission Date: 20200122
  Serious: No
  Sender: FDA-Public Use
  Company Number: US-009507513-1909USA001796

PATIENT
  Age: 19 Year
  Sex: Female
  Weight: 56.69 kg

DRUGS (2)
  1. NEXPLANON [Suspect]
     Active Substance: ETONOGESTREL
     Dosage: 1 IMPLANT (UNIT #2)
     Route: 059
     Dates: start: 20190801
  2. NEXPLANON [Suspect]
     Active Substance: ETONOGESTREL
     Indication: CONTRACEPTION
     Dosage: SINGLE IMPLANT (UNIT #1)
     Route: 059
     Dates: start: 20160622, end: 20190801

REACTIONS (5)
  - Complication associated with device [Recovered/Resolved]
  - Weight increased [Unknown]
  - Overdose [Unknown]
  - Complication of device removal [Unknown]
  - Complication of device removal [Not Recovered/Not Resolved]

NARRATIVE: CASE EVENT DATE: 20190801
